FAERS Safety Report 6078413-4 (Version None)
Quarter: 2009Q1

REPORT INFORMATION
  Report Type: 
  Country: None (occurrence: None)
  Receive Date: 20090212
  Receipt Date: 20090205
  Transmission Date: 20090719
  Serious: Yes (Hospitalization)
  Sender: FDA-Public Use
  Company Number: US025409

PATIENT
  Age: 58 Year
  Sex: Male
  Weight: 81.6475 kg

DRUGS (2)
  1. TREANDA [Suspect]
     Indication: NON-HODGKIN'S LYMPHOMA
     Dosage: 200 MG GIVEN ON DAYS 1  AND 2 OF CYCLE QD INTRAVENOUS
     Route: 042
     Dates: start: 20081119, end: 20081218
  2. NEULASTA [Concomitant]

REACTIONS (6)
  - ARTHRALGIA [None]
  - BONE MARROW FAILURE [None]
  - COUGH [None]
  - DIABETES MELLITUS [None]
  - PERIRECTAL ABSCESS [None]
  - RASH MACULO-PAPULAR [None]
